FAERS Safety Report 8924163 (Version 1)
Quarter: 2012Q4

REPORT INFORMATION
  Report Type: Spontaneous
  Country: US (occurrence: None)
  Receive Date: 20121121
  Receipt Date: 20121121
  Transmission Date: 20130627
  Serious: Yes (Hospitalization)
  Sender: FDA-Public Use
  Company Number: None

PATIENT
  Sex: Male
  Weight: 96.3 kg

DRUGS (2)
  1. CISPLATIN [Suspect]
     Dates: end: 20120925
  2. VINORELBINE TARTRATE [Suspect]
     Dates: end: 20121002

REACTIONS (2)
  - Abdominal pain [None]
  - Neutropenia [None]
